FAERS Safety Report 6907218-4 (Version None)
Quarter: 2010Q3

REPORT INFORMATION
  Report Type: 
  Country: None (occurrence: None)
  Receive Date: 20100804
  Receipt Date: 20100727
  Transmission Date: 20110219
  Serious: Yes (Other)
  Sender: FDA-Public Use
  Company Number: US-AMGEN-QUU424777

PATIENT
  Sex: Male
  Weight: 73.1 kg

DRUGS (1)
  1. NPLATE [Suspect]
     Indication: IDIOPATHIC THROMBOCYTOPENIC PURPURA
     Route: 058
     Dates: start: 20090817, end: 20100126

REACTIONS (3)
  - ACUTE MYELOID LEUKAEMIA [None]
  - BONE MARROW RETICULIN FIBROSIS [None]
  - MYELODYSPLASTIC SYNDROME [None]
